FAERS Safety Report 18244009 (Version 6)
Quarter: 2021Q1

REPORT INFORMATION
  Report Type: Report from Study
  Country: DK (occurrence: DK)
  Receive Date: 20200908
  Receipt Date: 20210315
  Transmission Date: 20210419
  Serious: Yes (Death, Life-Threatening, Hospitalization, Disabling, Other)
  Sender: FDA-Public Use
  Company Number: DK-GLAXOSMITHKLINE-DK2020EME173108

PATIENT
  Sex: Male

DRUGS (16)
  1. CEFUROXIM [Suspect]
     Active Substance: CEFUROXIME
     Indication: ANTIBIOTIC THERAPY
     Dosage: UNK
     Route: 042
  2. AMOXICILLIN AND CLAVULANATE POTASSIUM [Suspect]
     Active Substance: AMOXICILLIN\CLAVULANATE POTASSIUM
     Indication: PNEUMONIA
     Dosage: UNK
     Dates: start: 20150611
  3. GENTAMICIN. [Suspect]
     Active Substance: GENTAMICIN
     Indication: ANTIBIOTIC THERAPY
     Dosage: UNK
     Route: 042
  4. MEROPENEM. [Suspect]
     Active Substance: MEROPENEM
     Indication: ANTIBIOTIC THERAPY
     Dosage: UNK
  5. AMOXICILLIN AND CLAVULANATE POTASSIUM [Suspect]
     Active Substance: AMOXICILLIN\CLAVULANATE POTASSIUM
     Dosage: UNK
     Dates: start: 20160714, end: 20160720
  6. PIPERACILLIN AND TAZOBACTAM [Suspect]
     Active Substance: PIPERACILLIN SODIUM\TAZOBACTAM SODIUM
     Indication: RESPIRATORY ARREST
     Dosage: UNK
  7. PIPERACILLIN AND TAZOBACTAM [Suspect]
     Active Substance: PIPERACILLIN SODIUM\TAZOBACTAM SODIUM
     Indication: VOMITING
  8. VENTOLINE [Suspect]
     Active Substance: ALBUTEROL
     Indication: PRODUCT USED FOR UNKNOWN INDICATION
     Dosage: UNK
  9. MUMPS + RUBELLA VACCINE [Suspect]
     Active Substance: RUBELLA AND MUMPS VIRUS VACCINE, LIVE
     Indication: PRODUCT USED FOR UNKNOWN INDICATION
     Dosage: UNK
  10. PROPOFOL. [Suspect]
     Active Substance: PROPOFOL
     Indication: PRODUCT USED FOR UNKNOWN INDICATION
     Dosage: UNK
  11. CIPROFLOXACIN. [Suspect]
     Active Substance: CIPROFLOXACIN
     Indication: PRODUCT USED FOR UNKNOWN INDICATION
     Dosage: UNK
  12. PHENOXYMETHYLPENICILLIN [Suspect]
     Active Substance: PENICILLIN V
     Indication: ANTIBIOTIC THERAPY
     Dosage: UNK
  13. FENTANYL. [Suspect]
     Active Substance: FENTANYL
     Indication: PRODUCT USED FOR UNKNOWN INDICATION
     Dosage: UNK
  14. PULMOZYME [Suspect]
     Active Substance: DORNASE ALFA
     Indication: INTERSTITIAL LUNG DISEASE
     Dosage: UNK
  15. M?M?RVAXPRO [Suspect]
     Active Substance: MEASLES VIRUS STRAIN ENDERS^ ATTENUATED EDMONSTON LIVE ANTIGEN\MUMPS VIRUS STRAIN B LEVEL JERYL LYNN LIVE ANTIGEN\RUBELLA VIRUS STRAIN WISTAR RA 27/3 LIVE ANTIGEN
     Indication: PNEUMOCOCCAL SEPSIS
     Dosage: UNK
  16. BENZYLPENICILLIN [Suspect]
     Active Substance: PENICILLIN G
     Indication: PRODUCT USED FOR UNKNOWN INDICATION
     Dosage: UNK

REACTIONS (32)
  - Lung consolidation [Unknown]
  - Injury [Unknown]
  - Condition aggravated [Unknown]
  - Intestinal ischaemia [Unknown]
  - Pyrexia [Unknown]
  - Increased bronchial secretion [Unknown]
  - Metabolic disorder [Unknown]
  - Respiratory tract infection bacterial [Unknown]
  - Cerebral ischaemia [Unknown]
  - Malaise [Unknown]
  - Chest X-ray abnormal [Unknown]
  - Sputum increased [Unknown]
  - Motor dysfunction [Unknown]
  - Muscular weakness [Recovering/Resolving]
  - Dyspnoea [Unknown]
  - Respiratory arrest [Unknown]
  - Disease complication [Unknown]
  - Interstitial lung disease [Unknown]
  - Inflammation [Unknown]
  - Pneumonia [Recovered/Resolved]
  - Pneumonia aspiration [Not Recovered/Not Resolved]
  - Pneumococcal sepsis [Recovered/Resolved]
  - Resuscitation [Unknown]
  - Atelectasis [Recovering/Resolving]
  - Circulatory collapse [Fatal]
  - Ischaemic cerebral infarction [Unknown]
  - Dehydration [Recovered/Resolved]
  - Tachypnoea [Unknown]
  - Vomiting [Unknown]
  - Spinal muscular atrophy [Unknown]
  - Dysphagia [Unknown]
  - Diarrhoea [Recovered/Resolved]
